FAERS Safety Report 7457808-8 (Version None)
Quarter: 2011Q2

REPORT INFORMATION
  Report Type: 
  Country: None (occurrence: None)
  Receive Date: 20110504
  Receipt Date: 20110420
  Transmission Date: 20111010
  Serious: Yes (Hospitalization)
  Sender: FDA-Public Use
  Company Number: PHHY2011US34774

PATIENT
  Age: 82 Year
  Sex: Female

DRUGS (4)
  1. TRIAPHERIAN [Concomitant]
  2. TEKTURNA [Suspect]
     Dosage: 150 MG, UNK
     Dates: start: 20100801
  3. SERAX [Concomitant]
  4. PRILOSEC [Concomitant]

REACTIONS (8)
  - AKATHISIA [None]
  - RASH [None]
  - TREMOR [None]
  - GASTROINTESTINAL HAEMORRHAGE [None]
  - COUGH [None]
  - DYSSTASIA [None]
  - DYSPNOEA [None]
  - PAIN [None]
